FAERS Safety Report 7797047-4 (Version None)
Quarter: 2011Q4

REPORT INFORMATION
  Report Type: 
  Country: None (occurrence: None)
  Receive Date: 20111005
  Receipt Date: 20110922
  Transmission Date: 20120403
  Serious: Yes (Hospitalization, Other)
  Sender: FDA-Public Use
  Company Number: US-BAYER-201042047NA

PATIENT
  Age: 31 Year
  Sex: Female
  Weight: 122 kg

DRUGS (4)
  1. ZESTRIL [Concomitant]
     Dosage: 500 MG, UNK
     Route: 048
  2. LANTUS [Concomitant]
     Route: 058
  3. YAZ [Suspect]
     Dosage: UNK
     Route: 048
     Dates: start: 20070101, end: 20100601
  4. GLUCOPHAGE [Concomitant]
     Dosage: 500 MG, UNK
     Route: 048

REACTIONS (2)
  - CHOLECYSTITIS CHRONIC [None]
  - GALLBLADDER INJURY [None]
